FAERS Safety Report 8861328 (Version 1)
Quarter: 2012Q4

REPORT INFORMATION
  Report Type: Spontaneous
  Country: US (occurrence: None)
  Receive Date: 20121023
  Receipt Date: 20121023
  Transmission Date: 20130627
  Serious: Yes (Hospitalization)
  Sender: FDA-Public Use
  Company Number: VER-2012-00373

PATIENT
  Age: 71 Year
  Sex: Female

DRUGS (3)
  1. CYCLOSET [Suspect]
     Indication: DIABETES MELLITUS
  2. CYCLOSET [Suspect]
     Indication: DIABETES MELLITUS
  3. ATENOLOL (ATENOLOL) [Concomitant]

REACTIONS (1)
  - Syncope [None]
